FAERS Safety Report 6195160-9 (Version None)
Quarter: 2009Q2

REPORT INFORMATION
  Report Type: 
  Country: None (occurrence: None)
  Receive Date: 20090519
  Receipt Date: 20090512
  Transmission Date: 20091009
  Serious: Yes (Other)
  Sender: FDA-Public Use
  Company Number: JP-ABBOTT-09P-087-0573621-00

PATIENT
  Age: 70 Year
  Sex: Female

DRUGS (1)
  1. PRERAN [Suspect]
     Indication: DRUG USE FOR UNKNOWN INDICATION
     Route: 048
     Dates: start: 20090413, end: 20090420

REACTIONS (1)
  - HYPOGLYCAEMIA [None]
